FAERS Safety Report 21845169 (Version 2)
Quarter: 2023Q2

REPORT INFORMATION
  Report Type: Report from Study
  Country: US (occurrence: US)
  Receive Date: 20230110
  Receipt Date: 20230403
  Transmission Date: 20230721
  Serious: No
  Sender: FDA-Public Use
  Company Number: US-ABBVIE-4229868

PATIENT
  Age: 57 Year
  Sex: Female

DRUGS (2)
  1. SKYRIZI [Suspect]
     Active Substance: RISANKIZUMAB-RZAA
     Indication: Psoriasis
     Route: 058
     Dates: start: 20221109
  2. SKYRIZI [Suspect]
     Active Substance: RISANKIZUMAB-RZAA
     Indication: Psoriatic arthropathy

REACTIONS (5)
  - Injection site pain [Recovered/Resolved]
  - Psoriatic arthropathy [Not Recovered/Not Resolved]
  - Drug ineffective [Unknown]
  - Psoriasis [Not Recovered/Not Resolved]
  - Therapeutic response shortened [Not Recovered/Not Resolved]

NARRATIVE: CASE EVENT DATE: 20221205
